FAERS Safety Report 16337753 (Version 1)
Quarter: 2019Q2

REPORT INFORMATION
  Report Type: Spontaneous
  Country: US (occurrence: US)
  Receive Date: 20190521
  Receipt Date: 20190521
  Transmission Date: 20190711
  Serious: Yes (Other)
  Sender: FDA-Public Use
  Company Number: US-BRISTOL-MYERS SQUIBB COMPANY-BMS-2019-047575

PATIENT
  Age: 34 Year
  Sex: Male

DRUGS (1)
  1. DASATINIB. [Suspect]
     Active Substance: DASATINIB
     Indication: CHRONIC MYELOID LEUKAEMIA
     Dosage: STANDARD DOSE
     Route: 065

REACTIONS (3)
  - Cognitive disorder [Recovering/Resolving]
  - Cytopenia [Recovering/Resolving]
  - Fatigue [Recovering/Resolving]
